FAERS Safety Report 19191344 (Version 2)
Quarter: 2021Q2

REPORT INFORMATION
  Report Type: Spontaneous
  Country: US (occurrence: US)
  Receive Date: 20210428
  Receipt Date: 20210602
  Transmission Date: 20210717
  Serious: No
  Sender: FDA-Public Use
  Company Number: US-ASTRAZENECA-2021A262868

PATIENT
  Age: 776 Month
  Sex: Female
  Weight: 68 kg

DRUGS (5)
  1. SYMBICORT [Suspect]
     Active Substance: BUDESONIDE\FORMOTEROL FUMARATE DIHYDRATE
     Indication: ASTHMA
     Dosage: 160/4.5, TWO INHALATIONS TWO TIMES A DAY
     Route: 055
     Dates: start: 202102
  2. LOSARTAN. [Concomitant]
     Active Substance: LOSARTAN
     Indication: BLOOD PRESSURE MEASUREMENT
     Route: 048
  3. SINGULAIR [Concomitant]
     Active Substance: MONTELUKAST SODIUM
     Indication: SINUS OPERATION
     Route: 048
  4. ALBUTEROL. [Concomitant]
     Active Substance: ALBUTEROL
     Indication: ASTHMA
     Dosage: 90.0UG AS REQUIRED
     Route: 055
  5. LOSARTAN. [Concomitant]
     Active Substance: LOSARTAN
     Indication: BLOOD PRESSURE MEASUREMENT
     Route: 048
     Dates: start: 202102

REACTIONS (3)
  - Device use issue [Unknown]
  - Device delivery system issue [Unknown]
  - Asthma [Unknown]

NARRATIVE: CASE EVENT DATE: 202103
